FAERS Safety Report 18078241 (Version 2)
Quarter: 2020Q3

REPORT INFORMATION
  Report Type: Report from Study
  Country: US (occurrence: US)
  Receive Date: 20200727
  Receipt Date: 20200812
  Transmission Date: 20201103
  Serious: Yes (Hospitalization, Other)
  Sender: FDA-Public Use
  Company Number: NVSC2020US204983

PATIENT
  Sex: Male

DRUGS (1)
  1. ENTRESTO [Suspect]
     Active Substance: SACUBITRIL\VALSARTAN
     Indication: CARDIAC FAILURE
     Dosage: 24.26 MG, BID
     Route: 048
     Dates: start: 202007

REACTIONS (11)
  - Pleural effusion [Unknown]
  - Dizziness [Unknown]
  - Loss of consciousness [Unknown]
  - Tendon rupture [Unknown]
  - Pneumonia [Unknown]
  - Joint injury [Unknown]
  - Abdominal distension [Unknown]
  - Weight decreased [Unknown]
  - Pericardial effusion [Unknown]
  - Pyrexia [Unknown]
  - Cardiac disorder [Unknown]
